FAERS Safety Report 9031714 (Version 1)
Quarter: 2013Q1

REPORT INFORMATION
  Report Type: Spontaneous
  Country: HK (occurrence: HK)
  Receive Date: 20130124
  Receipt Date: 20130124
  Transmission Date: 20140127
  Serious: Yes (Other)
  Sender: FDA-Public Use
  Company Number: HK-ROXANE LABORATORIES, INC.-2013-RO-00119RO

PATIENT
  Age: 55 Year
  Sex: Male

DRUGS (5)
  1. LITHIUM CARBONATE [Suspect]
     Indication: BIPOLAR DISORDER
     Dates: start: 2007
  2. RISPERIDONE [Suspect]
     Indication: BIPOLAR DISORDER
     Dosage: 3 MG
     Route: 048
     Dates: start: 2008
  3. SODIUM VALPROATE [Suspect]
     Indication: BIPOLAR DISORDER
  4. RISPERIDONE [Suspect]
     Indication: BIPOLAR DISORDER
     Dates: start: 2007, end: 2008
  5. RISPERIDONE [Suspect]
     Dates: start: 2008

REACTIONS (1)
  - Tardive dyskinesia [Recovered/Resolved]
